FAERS Safety Report 16484139 (Version 1)
Quarter: 2019Q3

REPORT INFORMATION
  Report Type: Spontaneous
  Country: US (occurrence: US)
  Receive Date: 20190625
  Receipt Date: 20190625
  Transmission Date: 20191004
  Serious: Yes (Other)
  Sender: FDA-Public Use
  Company Number: None

PATIENT
  Age: 61 Year
  Sex: Female
  Weight: 82.8 kg

DRUGS (3)
  1. LEVOFLOXACIN. [Suspect]
     Active Substance: LEVOFLOXACIN
     Indication: SINUSITIS
     Dosage: ?          QUANTITY:14 TABLET(S);?
     Route: 048
     Dates: start: 20190522, end: 20190528
  2. LEVOTHYROXIN 75MG [Concomitant]
     Active Substance: LEVOTHYROXINE SODIUM
  3. CETERIZINE 10MG [Concomitant]

REACTIONS (6)
  - Limb discomfort [None]
  - Loss of personal independence in daily activities [None]
  - Palpitations [None]
  - Insomnia [None]
  - Arthralgia [None]
  - Pain in extremity [None]

NARRATIVE: CASE EVENT DATE: 20190522
